FAERS Safety Report 21009755 (Version 1)
Quarter: 2022Q2

REPORT INFORMATION
  Report Type: Spontaneous
  Country: US (occurrence: None)
  Receive Date: 20220625
  Receipt Date: 20220625
  Transmission Date: 20220721
  Serious: Yes (Disabling)
  Sender: FDA-Public Use
  Company Number: None

PATIENT
  Age: 66 Year
  Sex: Female
  Weight: 68.85 kg

DRUGS (4)
  1. RISEDRONATE SODIUM [Suspect]
     Active Substance: RISEDRONATE SODIUM
     Indication: Osteoporosis
     Dosage: OTHER QUANTITY : 1 TABLET(S)?
     Route: 048
     Dates: start: 20220311, end: 20220619
  2. Albuterol inhaler prn [Concomitant]
  3. LIDOCAINE PATCH [Concomitant]
     Active Substance: LIDOCAINE
  4. calcium/vitamin d [Concomitant]

REACTIONS (1)
  - Muscle spasms [None]

NARRATIVE: CASE EVENT DATE: 20220609
